FAERS Safety Report 4285682-X (Version None)
Quarter: 2004Q1

REPORT INFORMATION
  Report Type: 
  Country: None (occurrence: None)
  Receive Date: 20040203
  Receipt Date: 20040129
  Transmission Date: 20041129
  Serious: Yes (Life-Threatening)
  Sender: FDA-Public Use
  Company Number: 7289

PATIENT
  Age: 70 Year
  Sex: 0

DRUGS (1)
  1. METHOTREXATE [Suspect]
     Indication: PSORIASIS
     Dosage: 13 MG;PO
     Route: 048
     Dates: start: 20020101, end: 20030401

REACTIONS (1)
  - NEUTROPENIC SEPSIS [None]
